FAERS Safety Report 10055744 (Version 1)
Quarter: 2014Q2

REPORT INFORMATION
  Report Type: Spontaneous
  Country: CN (occurrence: CN)
  Receive Date: 20140403
  Receipt Date: 20140403
  Transmission Date: 20141212
  Serious: Yes (Hospitalization)
  Sender: FDA-Public Use
  Company Number: CN-009507513-1403CHN013221

PATIENT
  Age: 64 Year
  Sex: Female

DRUGS (4)
  1. ZOCOR [Suspect]
     Indication: DYSLIPIDAEMIA
     Dosage: 20 MG, QN (EVERY NIGHT)
     Route: 048
     Dates: start: 20121228, end: 20130108
  2. ZOCOR [Suspect]
     Dosage: 20 MG, QN (EVERY NIGHT)
     Dates: start: 20121228, end: 20130108
  3. MOBIC [Suspect]
     Indication: ARTHRITIS
     Dosage: 15 MG, QN (EVERY NIGHT)
     Route: 048
     Dates: start: 20130102, end: 20130108
  4. METHYLPREDNISOLONE [Concomitant]
     Indication: ARTHRITIS
     Dosage: 40 MG, QD
     Route: 041
     Dates: start: 20121228, end: 20130108

REACTIONS (1)
  - Hepatocellular injury [Recovering/Resolving]
